FAERS Safety Report 9132932 (Version 1)
Quarter: 2013Q1

REPORT INFORMATION
  Report Type: Spontaneous
  Country: DE (occurrence: DE)
  Receive Date: 20130301
  Receipt Date: 20130301
  Transmission Date: 20140127
  Serious: Yes (Hospitalization, Other)
  Sender: FDA-Public Use
  Company Number: DE-ROXANE LABORATORIES, INC.-2013-RO-00303RO

PATIENT
  Age: 69 Year
  Sex: Male

DRUGS (6)
  1. MYCOPHENOLATE MOFETIL [Suspect]
     Indication: RENAL TRANSPLANT
  2. CYCLOPHOSPHAMIDE TABLETS USP [Suspect]
     Indication: IGA NEPHROPATHY
  3. AMLODIPINE [Suspect]
  4. PANTOPRAZOLE [Suspect]
  5. TACROLIMUS [Suspect]
     Indication: RENAL TRANSPLANT
  6. METOPROLOL [Suspect]

REACTIONS (4)
  - Cutaneous vasculitis [Recovered/Resolved]
  - Henoch-Schonlein purpura [Recovered/Resolved]
  - IgA nephropathy [Unknown]
  - Renal failure chronic [Recovered/Resolved]
